FAERS Safety Report 4687152-3 (Version None)
Quarter: 2005Q2

REPORT INFORMATION
  Report Type: 
  Country: None (occurrence: None)
  Receive Date: 20050608
  Receipt Date: 20050527
  Transmission Date: 20051028
  Serious: Yes (Death)
  Sender: FDA-Public Use
  Company Number: AZAUS200500167

PATIENT
  Age: 71 Year
  Sex: Male

DRUGS (11)
  1. AZACITIDINE (AZACITIDINE) (INJECTION) [Suspect]
     Indication: MYELODYSPLASTIC SYNDROME
     Dosage: 75 MG/M2 (148 MG, DAILY X 7  DAYS), SUBCUTANEOUS
     Route: 058
  2. CITALOPRAM (CITALOPRAM) [Concomitant]
  3. LEVOFLOXACIN [Concomitant]
  4. METRONIDAZOLE [Concomitant]
  5. DOCUSATE SODIUM(DOCUSATE SODIUM) [Concomitant]
  6. SENNA (SENNA) [Concomitant]
  7. METHYLPREDNISOLONE [Concomitant]
  8. EPOETIN ALFA (EPOETIN ALFA) [Concomitant]
  9. LORAZEPAM [Concomitant]
  10. OXAZEPAM [Concomitant]
  11. OXYCODONE HCL [Concomitant]

REACTIONS (4)
  - EXANTHEM [None]
  - INTERSTITIAL LUNG DISEASE [None]
  - PNEUMONITIS [None]
  - WHEEZING [None]
